FAERS Safety Report 9391545 (Version 1)
Quarter: 2013Q3

REPORT INFORMATION
  Report Type: Report from Study
  Country: DE (occurrence: DE)
  Receive Date: 20130709
  Receipt Date: 20130709
  Transmission Date: 20140515
  Serious: Yes (Hospitalization)
  Sender: FDA-Public Use
  Company Number: DE-TEVA-415954ISR

PATIENT
  Age: 46 Year
  Sex: Female

DRUGS (2)
  1. CARBOPLATIN [Suspect]
     Indication: OVARIAN CANCER
     Dosage: 739.6 MILLIGRAM DAILY;
     Route: 042
     Dates: start: 20130523
  2. PACLITAXEL [Suspect]
     Indication: OVARIAN CANCER
     Dosage: 313 MILLIGRAM DAILY;
     Route: 042
     Dates: start: 20130523

REACTIONS (1)
  - Pulmonary embolism [Recovered/Resolved]
